FAERS Safety Report 26219222 (Version 1)
Quarter: 2025Q4

REPORT INFORMATION
  Report Type: Spontaneous
  Country: EU (occurrence: EU)
  Receive Date: 20251231
  Receipt Date: 20251231
  Transmission Date: 20260118
  Serious: Yes (Hospitalization)
  Sender: PFIZER
  Company Number: EU-GLAXOSMITHKLINE-FR2021GSK020169

PATIENT
  Age: 75 Year
  Sex: Female
  Weight: 66 kg

DRUGS (7)
  1. CARBOPLATIN [Suspect]
     Active Substance: CARBOPLATIN
     Indication: Ovarian cancer
     Dosage: 420 MG
     Route: 042
     Dates: start: 20201125
  2. CARBOPLATIN [Suspect]
     Active Substance: CARBOPLATIN
     Dosage: 410 MG
     Route: 042
     Dates: start: 20201216
  3. CARBOPLATIN [Suspect]
     Active Substance: CARBOPLATIN
     Dosage: 380 MG
     Route: 042
     Dates: start: 20210106, end: 20210107
  4. PACLITAXEL [Suspect]
     Active Substance: PACLITAXEL
     Indication: Ovarian cancer
     Dosage: 288 MG
     Route: 042
     Dates: start: 20201125
  5. PACLITAXEL [Suspect]
     Active Substance: PACLITAXEL
     Dosage: 228 MG
     Route: 042
     Dates: start: 20210106, end: 20210106
  6. BEVACIZUMAB [Suspect]
     Active Substance: BEVACIZUMAB
     Indication: Ovarian cancer
     Dosage: 950 MG
     Dates: start: 20210106, end: 20210106
  7. DOSTARLIMAB [Suspect]
     Active Substance: DOSTARLIMAB
     Indication: Ovarian cancer
     Dosage: UNK
     Dates: start: 20201216, end: 20210106

REACTIONS (3)
  - Wound dehiscence [Recovered/Resolved]
  - Neutrophil percentage increased [Unknown]
  - White blood cell count increased [Unknown]

NARRATIVE: CASE EVENT DATE: 20210125
